FAERS Safety Report 6811868-3 (Version None)
Quarter: 2010Q3

REPORT INFORMATION
  Report Type: 
  Country: None (occurrence: None)
  Receive Date: 20100701
  Receipt Date: 20100623
  Transmission Date: 20110219
  Serious: Yes (Other)
  Sender: FDA-Public Use
  Company Number: DE-JNJFOC-20100608090

PATIENT
  Sex: Female

DRUGS (3)
  1. DOXORUBICIN [Suspect]
     Indication: MULTIPLE MYELOMA
     Route: 042
  2. VELCADE [Suspect]
     Indication: MULTIPLE MYELOMA
     Route: 042
  3. DEXAMETHASONE [Concomitant]
     Indication: MULTIPLE MYELOMA
     Route: 050

REACTIONS (3)
  - NERVE INJURY [None]
  - PARESIS [None]
  - POLYNEUROPATHY [None]
